FAERS Safety Report 7135432-4 (Version None)
Quarter: 2010Q4

REPORT INFORMATION
  Report Type: 
  Country: None (occurrence: None)
  Receive Date: 20101203
  Receipt Date: 20101124
  Transmission Date: 20110411
  Serious: Yes (Hospitalization, Disabling, Other)
  Sender: FDA-Public Use
  Company Number: US-TEVA-257931USA

PATIENT
  Sex: Female
  Weight: 81.72 kg

DRUGS (8)
  1. QUININE SULFATE [Suspect]
     Indication: MUSCLE SPASMS
     Dates: start: 20050101, end: 20080721
  2. QUINAPRIL HYDROCHLORIDE [Concomitant]
     Indication: HYPERTENSION
  3. ROSIGLITAZONE MALEATE [Concomitant]
     Indication: DIABETES MELLITUS
  4. GLIPIZIDE [Concomitant]
     Indication: DIABETES MELLITUS
  5. METFORMIN [Concomitant]
     Indication: DIABETES MELLITUS
  6. GABAPENTIN [Concomitant]
     Indication: PAIN
  7. VICODIN [Concomitant]
     Indication: PAIN
  8. TRAMADOL HYDROCHLORIDE [Concomitant]
     Indication: PAIN

REACTIONS (10)
  - ABASIA [None]
  - ARTERIOSCLEROSIS [None]
  - ATRIAL FIBRILLATION [None]
  - ATRIOVENTRICULAR BLOCK [None]
  - BACK PAIN [None]
  - BLOOD DISORDER [None]
  - CORONARY ARTERY DISEASE [None]
  - HEART RATE ABNORMAL [None]
  - PAIN IN EXTREMITY [None]
  - VISUAL IMPAIRMENT [None]
